FAERS Safety Report 17605086 (Version 1)
Quarter: 2020Q1

REPORT INFORMATION
  Report Type: Spontaneous
  Country: US (occurrence: US)
  Receive Date: 20200331
  Receipt Date: 20200331
  Transmission Date: 20200409
  Serious: Yes (Hospitalization)
  Sender: FDA-Public Use
  Company Number: None

PATIENT
  Age: 75 Year
  Sex: Female

DRUGS (4)
  1. HUMIRA [Suspect]
     Active Substance: ADALIMUMAB
     Indication: PSORIASIS
     Dosage: ?          OTHER FREQUENCY:QOW;?
     Route: 058
     Dates: start: 20200110
  2. BRILINTA [Concomitant]
     Active Substance: TICAGRELOR
  3. VITAMIN D [Concomitant]
     Active Substance: VITAMIN D NOS
  4. BYSTOLIC [Concomitant]
     Active Substance: NEBIVOLOL HYDROCHLORIDE

REACTIONS (3)
  - Intracranial aneurysm [None]
  - Pain [None]
  - Psoriasis [None]

NARRATIVE: CASE EVENT DATE: 20200310
